FAERS Safety Report 10986632 (Version 2)
Quarter: 2015Q3

REPORT INFORMATION
  Report Type: Report from Study
  Country: GB (occurrence: GB)
  Receive Date: 20150402
  Receipt Date: 20150730
  Transmission Date: 20151125
  Serious: Yes (Hospitalization)
  Sender: FDA-Public Use
  Company Number: 2015SGN00352

PATIENT
  Age: 57 Year
  Sex: Female

DRUGS (4)
  1. BRENTUXIMAB VEDOTIN [Suspect]
     Active Substance: BRENTUXIMAB VEDOTIN
     Indication: HODGKIN^S DISEASE
     Dosage: 120 MG, UNK
     Route: 042
     Dates: start: 20150205, end: 20150305
  2. DACARBAZINE. [Suspect]
     Active Substance: DACARBAZINE
     Indication: HODGKIN^S DISEASE
     Dosage: 870 MG, UNK
     Route: 042
     Dates: start: 20150205, end: 20150305
  3. DOXORUBICIN [Suspect]
     Active Substance: DOXORUBICIN
     Indication: HODGKIN^S DISEASE
     Dosage: 58 MG, UNK
     Route: 042
     Dates: start: 20150205, end: 20150305
  4. VINBLASTINE [Suspect]
     Active Substance: VINBLASTINE
     Indication: HODGKIN^S DISEASE
     Dosage: 14 MG, UNK
     Route: 042
     Dates: start: 20150205, end: 20150305

REACTIONS (5)
  - Fatigue [None]
  - Electrolyte imbalance [None]
  - Diarrhoea [Recovered/Resolved with Sequelae]
  - Dehydration [None]
  - Neutropenia [Recovered/Resolved with Sequelae]

NARRATIVE: CASE EVENT DATE: 20150305
